FAERS Safety Report 20887478 (Version 1)
Quarter: 2022Q2

REPORT INFORMATION
  Report Type: Spontaneous
  Country: CN (occurrence: CN)
  Receive Date: 20220528
  Receipt Date: 20220528
  Transmission Date: 20220721
  Serious: Yes (Other)
  Sender: FDA-Public Use
  Company Number: None

PATIENT
  Age: 41 Year
  Sex: Female
  Weight: 76 kg

DRUGS (4)
  1. CYCLOPHOSPHAMIDE [Suspect]
     Active Substance: CYCLOPHOSPHAMIDE
     Indication: Breast cancer female
     Dosage: 0.85, 000 G QD,ONCE DAILY, ENDOXAN WITH 0.9% SODIUM CHLORIDE 100 ML INJECTION
     Route: 041
     Dates: start: 20220408, end: 20220408
  2. ANHYDROUS DEXTROSE [Suspect]
     Active Substance: ANHYDROUS DEXTROSE
     Indication: Medication dilution
     Dosage: 100 ML, QD, PIRARUBICIN HYDROCHLORIDE WITH 5% GLUCOSE
     Route: 041
     Dates: start: 20220408, end: 20220408
  3. SODIUM CHLORIDE [Suspect]
     Active Substance: SODIUM CHLORIDE
     Indication: Medication dilution
     Dosage: 100 ML, QD, ENDOXAN WITH 0.9% SODIUM CHLORIDE
     Route: 041
     Dates: start: 20220408, end: 20220408
  4. PIRARUBICIN HYDROCHLORIDE [Suspect]
     Active Substance: PIRARUBICIN HYDROCHLORIDE
     Indication: Breast cancer female
     Dosage: 85.000000 MG QD, ONCE DAILY, PIRARUBICIN HYDROCHLORIDE WITH 5% GLUCOSE INJECTION
     Route: 041
     Dates: start: 20220408, end: 20220408

REACTIONS (1)
  - Myelosuppression [Recovering/Resolving]

NARRATIVE: CASE EVENT DATE: 20220415
